FAERS Safety Report 7565576-4 (Version None)
Quarter: 2011Q2

REPORT INFORMATION
  Report Type: 
  Country: None (occurrence: None)
  Receive Date: 20110615
  Receipt Date: 20110531
  Transmission Date: 20111010
  Serious: Yes (Other)
  Sender: FDA-Public Use
  Company Number: LTI2011A00142

PATIENT
  Age: 58 Year
  Sex: Female

DRUGS (1)
  1. ACTOS [Suspect]
     Indication: TYPE 2 DIABETES MELLITUS
     Dosage: 30 MG (30 MG, 1 IN 1 D), ORAL, 15 MG (15 MG,1 IN 1 D) ORAL,
     Route: 048
     Dates: start: 20090101, end: 20110501

REACTIONS (3)
  - URINE CYTOLOGY ABNORMAL [None]
  - URINARY TRACT NEOPLASM [None]
  - HAEMATURIA [None]
